FAERS Safety Report 5383463-7 (Version None)
Quarter: 2007Q3

REPORT INFORMATION
  Report Type: 
  Country: None (occurrence: None)
  Receive Date: 20070710
  Receipt Date: 20070706
  Transmission Date: 20080115
  Serious: Yes (Hospitalization)
  Sender: FDA-Public Use
  Company Number: DEWYE981306JUL07

PATIENT
  Sex: Female
  Weight: 73 kg

DRUGS (2)
  1. VENLAFAXINE HCL [Suspect]
     Dosage: OVERDOSE AMOUNT PROBABLY 175 MG
     Route: 048
     Dates: start: 20070706, end: 20070706
  2. SEROQUEL [Suspect]
     Dosage: 20 TABLETS EACH TABLET 100 MG (OVERDOSE AMOUNT 2000 MG)
     Route: 048
     Dates: start: 20070706, end: 20070706

REACTIONS (5)
  - FATIGUE [None]
  - GASTROINTESTINAL SOUNDS ABNORMAL [None]
  - INTENTIONAL OVERDOSE [None]
  - TACHYCARDIA [None]
  - VERTIGO [None]
